FAERS Safety Report 19126573 (Version 1)
Quarter: 2021Q2

REPORT INFORMATION
  Report Type: Spontaneous
  Country: US (occurrence: US)
  Receive Date: 20210413
  Receipt Date: 20210413
  Transmission Date: 20210717
  Serious: Yes (Other)
  Sender: FDA-Public Use
  Company Number: US-CMP PHARMA-2021CMP00003

PATIENT
  Age: 62 Year
  Sex: Female

DRUGS (11)
  1. ARIPIPRAZOLE. [Concomitant]
     Active Substance: ARIPIPRAZOLE
     Dosage: 5 MG 1X/DAY
     Route: 065
  2. DARUNAVIR [Suspect]
     Active Substance: DARUNAVIR
     Indication: ANTIRETROVIRAL THERAPY
     Dosage: 600 MG, 2X/DAY
     Route: 065
  3. TRIAMCINOLONE [Suspect]
     Active Substance: TRIAMCINOLONE
     Indication: BACK PAIN
     Dosage: 80 MG, ONCE
     Route: 065
  4. DOLUTEGRAVIR [Concomitant]
     Active Substance: DOLUTEGRAVIR
     Indication: ANTIRETROVIRAL THERAPY
     Dosage: 50 MG, 1X/DAY
     Route: 065
  5. MARAVIROC [Concomitant]
     Active Substance: MARAVIROC
     Indication: ANTIRETROVIRAL THERAPY
     Dosage: 150 MG, 2X/DAY
     Route: 065
  6. EMTRICITABINE [Concomitant]
     Active Substance: EMTRICITABINE
     Indication: ANTIRETROVIRAL THERAPY
     Dosage: 200 MG, 1X/DAY
     Route: 065
  7. TENOFOVIR ALAFENAMIDE [Concomitant]
     Active Substance: TENOFOVIR ALAFENAMIDE
     Indication: ANTIRETROVIRAL THERAPY
     Dosage: 25 MG, 1X/DAY
     Route: 065
  8. RITONAVIR. [Suspect]
     Active Substance: RITONAVIR
     Indication: ANTIRETROVIRAL THERAPY
     Dosage: 100 MG, 2X/DAY
     Route: 065
  9. LIDOCAINE. [Concomitant]
     Active Substance: LIDOCAINE
     Indication: BACK PAIN
     Dosage: 7 ML, ONCE
     Route: 065
  10. DULOXETINE. [Concomitant]
     Active Substance: DULOXETINE
     Indication: DEPRESSION
     Dosage: 60 MG
     Route: 065
  11. ARIPIPRAZOLE. [Concomitant]
     Active Substance: ARIPIPRAZOLE
     Indication: DEPRESSION
     Dosage: 2.5 MG, 1X/DAY
     Route: 065

REACTIONS (2)
  - Drug interaction [Recovered/Resolved]
  - Cushing^s syndrome [Recovered/Resolved]
